FAERS Safety Report 22136657 (Version 2)
Quarter: 2023Q2

REPORT INFORMATION
  Report Type: Spontaneous
  Country: IQ (occurrence: IQ)
  Receive Date: 20230324
  Receipt Date: 20230404
  Transmission Date: 20230721
  Serious: Yes (Death, Other)
  Sender: FDA-Public Use
  Company Number: IQ-SA-2023SA093810

PATIENT
  Age: 2 Year
  Sex: Male

DRUGS (1)
  1. MYOZYME [Suspect]
     Active Substance: ALGLUCOSIDASE ALFA
     Indication: Glycogen storage disease type II
     Dosage: 20 MG/KG, QOW (20MG/KG/DOSE/ ONCE EOW / EACH VIAL 50 MG)
     Route: 042
     Dates: start: 20210728, end: 2021

REACTIONS (5)
  - Death [Fatal]
  - Cardiomyopathy [Unknown]
  - Respiratory failure [Unknown]
  - Hypotonia [Unknown]
  - Muscular weakness [Unknown]

NARRATIVE: CASE EVENT DATE: 20210101
